FAERS Safety Report 5010877-7 (Version None)
Quarter: 2006Q2

REPORT INFORMATION
  Report Type: 
  Country: None (occurrence: None)
  Receive Date: 20060525
  Receipt Date: 20060519
  Transmission Date: 20061013
  Serious: Yes (Other)
  Sender: FDA-Public Use
  Company Number: PT-GLAXOSMITHKLINE-B0425065A

PATIENT
  Age: 55 Year
  Sex: Female

DRUGS (1)
  1. ZOREF [Suspect]
     Dosage: 1G PER DAY
     Dates: start: 20060311, end: 20060313

REACTIONS (4)
  - EPIDERMOLYSIS [None]
  - ERYTHEMA [None]
  - OEDEMA PERIPHERAL [None]
  - PRURITUS [None]
